FAERS Safety Report 5927346-X (Version None)
Quarter: 2008Q4

REPORT INFORMATION
  Report Type: 
  Country: None (occurrence: None)
  Receive Date: 20081021
  Receipt Date: 20081009
  Transmission Date: 20090506
  Serious: Yes (Other)
  Sender: FDA-Public Use
  Company Number: CHPA2008US17544

PATIENT
  Age: 80 Year
  Sex: Female
  Weight: 56.7 kg

DRUGS (1)
  1. VOLTAREN [Suspect]
     Indication: OSTEOARTHRITIS
     Dosage: QD OR BID, TOPICAL
     Route: 061
     Dates: start: 20080101, end: 20080930

REACTIONS (5)
  - ERYTHEMA [None]
  - INCORRECT DOSE ADMINISTERED [None]
  - PAIN [None]
  - SKIN HAEMORRHAGE [None]
  - WRONG TECHNIQUE IN DRUG USAGE PROCESS [None]
